FAERS Safety Report 9921889 (Version 1)
Quarter: 2014Q1

REPORT INFORMATION
  Report Type: Spontaneous
  Country: US (occurrence: None)
  Receive Date: 20140221
  Receipt Date: 20140221
  Transmission Date: 20141002
  Serious: Yes (Other)
  Sender: FDA-Public Use
  Company Number: None

PATIENT
  Sex: Female
  Weight: 60.33 kg

DRUGS (1)
  1. TIMOLOL [Suspect]
     Indication: INTRAOCULAR PRESSURE INCREASED
     Dosage: 0.5% DAILY OD (DAYTIME) ?1GTTS EACH EYE (DAILY IN AM)?1 GTT IN EACH EYE
     Dates: start: 20131231

REACTIONS (3)
  - Nausea [None]
  - Diarrhoea [None]
  - Dyspnoea [None]
